FAERS Safety Report 9797440 (Version 1)
Quarter: 2014Q1

REPORT INFORMATION
  Report Type: Spontaneous
  Country: RU (occurrence: RU)
  Receive Date: 20140106
  Receipt Date: 20140106
  Transmission Date: 20141002
  Serious: Yes (Death)
  Sender: FDA-Public Use
  Company Number: PHHY2013RU151612

PATIENT
  Age: 84 Year
  Sex: Female

DRUGS (1)
  1. GLIVEC [Suspect]
     Route: 048

REACTIONS (4)
  - Myocardial ischaemia [Fatal]
  - Leukopenia [Fatal]
  - Anaemia [Fatal]
  - Thrombocytopenia [Fatal]
